FAERS Safety Report 4821240-3 (Version None)
Quarter: 2005Q4

REPORT INFORMATION
  Report Type: 
  Country: None (occurrence: None)
  Receive Date: 20051107
  Receipt Date: 20030226
  Transmission Date: 20060501
  Serious: Yes (Life-Threatening, Hospitalization, Other)
  Sender: FDA-Public Use
  Company Number: US-BRISTOL-MYERS SQUIBB COMPANY-12197232

PATIENT
  Age: 34 Year
  Sex: Male

DRUGS (28)
  1. ZERIT [Suspect]
     Indication: ACQUIRED IMMUNODEFICIENCY SYNDROME
     Route: 048
     Dates: start: 20010806, end: 20020311
  2. REYATAZ [Suspect]
     Indication: HIV INFECTION
     Route: 048
     Dates: start: 20040116, end: 20040924
  3. EPIVIR [Suspect]
     Indication: HIV INFECTION
     Route: 048
     Dates: start: 20010806, end: 20041103
  4. VIRACEPT [Suspect]
     Indication: HIV INFECTION
     Dosage: STOPPED 21-OCT-2001, RESTARTED 27-SEP-2004
     Route: 048
     Dates: start: 20010806, end: 20041103
  5. VIRAMUNE [Suspect]
     Indication: HIV INFECTION
     Dosage: STOPPED 15-MAR-2004, RESTARTED 10-MAY-2004
     Route: 048
     Dates: start: 20040116, end: 20040914
  6. ZIAGEN [Suspect]
     Indication: ACQUIRED IMMUNODEFICIENCY SYNDROME
     Dosage: THERAPY INTERRUPTED 3/11/2002, SUBSEQUENTLY RESTARTED 28-MAR-2002, DISCONTINUED 03-MAR-2004
     Route: 048
     Dates: start: 20011022, end: 20040303
  7. INTERFERON ALFA [Suspect]
     Indication: HIV INFECTION
  8. REBETOL [Suspect]
     Indication: HIV INFECTION
     Route: 048
  9. KALETRA [Suspect]
     Indication: ACQUIRED IMMUNODEFICIENCY SYNDROME
     Dosage: STOPPED 11-MAR-2002, RESTARTED 28-MAR-2002
     Route: 048
     Dates: start: 20011022, end: 20040924
  10. LEXIVA [Suspect]
     Indication: HIV INFECTION
     Route: 048
     Dates: start: 20050216
  11. STOCRIN [Concomitant]
     Route: 048
     Dates: start: 20050216, end: 20050328
  12. TEGRETOL [Concomitant]
     Route: 048
     Dates: start: 20020215, end: 20020228
  13. LOXONIN [Concomitant]
     Dosage: 04-FEB-2002 WITHDRAWN 11-MAR-2002, RESTARTED 01-APR-2003
     Route: 048
     Dates: start: 20020204
  14. LOPEMIN [Concomitant]
     Dosage: STOPPED 15-NOV-2002, RESTARTED 01-APR-2003
     Route: 048
     Dates: start: 20011022
  15. GASTER [Concomitant]
     Dosage: INTERRUPTED FROM 24-SEP-2001 TO 04-FEB-2002.
     Route: 048
     Dates: start: 20010910, end: 20020311
  16. SELBEX [Concomitant]
     Route: 048
     Dates: start: 20010910, end: 20010924
  17. OMEPRAL [Concomitant]
     Route: 048
     Dates: start: 20011116, end: 20011130
  18. VALTREX [Concomitant]
     Route: 048
     Dates: start: 20011128, end: 20011210
  19. ALDACTONE [Concomitant]
     Route: 048
     Dates: start: 20050328
  20. DIFLUCAN [Concomitant]
     Dosage: STOPPED 21-FEB-2002 RESTARTED 01-APR-2003
     Route: 048
     Dates: start: 20020215
  21. NOVACT M [Concomitant]
     Route: 042
     Dates: start: 20011226, end: 20020311
  22. VIREAD [Concomitant]
     Route: 048
     Dates: start: 20020328, end: 20040113
  23. NORVIR [Concomitant]
     Route: 048
     Dates: start: 20050216
  24. EPZICOM [Concomitant]
     Dates: start: 20050216, end: 20050317
  25. ZIAGEN [Concomitant]
     Route: 048
     Dates: start: 20050318
  26. URINORM [Concomitant]
     Route: 048
     Dates: start: 20050328
  27. LASIX [Concomitant]
     Route: 048
     Dates: start: 20050328
  28. SALCOAT [Concomitant]
     Route: 049
     Dates: start: 20020215, end: 20020221

REACTIONS (4)
  - BLOOD LACTIC ACID INCREASED [None]
  - DYSPNOEA [None]
  - GUILLAIN-BARRE SYNDROME [None]
  - METABOLIC ACIDOSIS [None]
